FAERS Safety Report 5911914-5 (Version None)
Quarter: 2008Q4

REPORT INFORMATION
  Report Type: 
  Country: None (occurrence: None)
  Receive Date: 20081008
  Receipt Date: 20080929
  Transmission Date: 20090506
  Serious: Yes (Hospitalization, Other)
  Sender: FDA-Public Use
  Company Number: PHHY2008DE19360

PATIENT
  Sex: Male

DRUGS (5)
  1. DIOVAN [Suspect]
     Dosage: UNK
  2. PROVAS COMP [Suspect]
     Dosage: UNK MG, UNK
     Dates: start: 20050101
  3. VERAHEXAL [Concomitant]
  4. HERBAL PREPARATION [Concomitant]
  5. INSULIN [Concomitant]

REACTIONS (4)
  - DIABETES MELLITUS [None]
  - DIABETIC FOOT [None]
  - PRURITUS [None]
  - SURGERY [None]
